FAERS Safety Report 25122645 (Version 1)
Quarter: 2025Q1

REPORT INFORMATION
  Report Type: Report from Study
  Country: US (occurrence: US)
  Receive Date: 20250326
  Receipt Date: 20250326
  Transmission Date: 20250409
  Serious: Yes (Other)
  Sender: AMGEN
  Company Number: US-AMGEN-USASL2024120795

PATIENT
  Age: 61 Year
  Sex: Female
  Weight: 57.687 kg

DRUGS (3)
  1. VECTIBIX [Suspect]
     Active Substance: PANITUMUMAB
     Indication: Product used for unknown indication
     Route: 065
  2. VECTIBIX [Suspect]
     Active Substance: PANITUMUMAB
     Route: 065
  3. VECTIBIX [Suspect]
     Active Substance: PANITUMUMAB
     Route: 065

REACTIONS (12)
  - Neuropathy peripheral [Unknown]
  - Neutropenia [Unknown]
  - Pulmonary arterial hypertension [Unknown]
  - Colon cancer [Unknown]
  - Acute kidney injury [Unknown]
  - Hypokalaemia [Unknown]
  - Idiopathic urticaria [Unknown]
  - Iron deficiency anaemia [Unknown]
  - Rash [Unknown]
  - Palmar-plantar erythrodysaesthesia syndrome [Unknown]
  - Hypotension [Unknown]
  - Hypomagnesaemia [Unknown]
